FAERS Safety Report 11938921 (Version 1)
Quarter: 2016Q1

REPORT INFORMATION
  Report Type: Other
  Country: JP (occurrence: JP)
  Receive Date: 20160122
  Receipt Date: 20160122
  Transmission Date: 20160526
  Serious: Yes (Death)
  Sender: FDA-Public Use
  Company Number: JP-ACTELION-A-CH2016-130149

PATIENT
  Age: 78 Year
  Sex: Female

DRUGS (1)
  1. EPOPROSTENOL ACT [Suspect]
     Active Substance: EPOPROSTENOL
     Indication: PULMONARY HYPERTENSION
     Route: 042

REACTIONS (6)
  - Blood creatinine increased [Unknown]
  - Cardiac failure [Fatal]
  - Condition aggravated [Fatal]
  - Generalised oedema [Fatal]
  - Pulmonary hypertension [Fatal]
  - Ascites [Fatal]
